FAERS Safety Report 18030988 (Version 1)
Quarter: 2020Q3

REPORT INFORMATION
  Report Type: Spontaneous
  Country: US (occurrence: US)
  Receive Date: 20200715
  Receipt Date: 20200715
  Transmission Date: 20201103
  Serious: Yes (Disabling, Other)
  Sender: FDA-Public Use
  Company Number: None

PATIENT
  Age: 42 Year
  Sex: Male
  Weight: 76.5 kg

DRUGS (5)
  1. WELLBUTRIN [Concomitant]
     Active Substance: BUPROPION HYDROCHLORIDE
  2. VITAMIN D3 [Concomitant]
     Active Substance: CHOLECALCIFEROL
  3. LOPERAMIDE 2MG [Concomitant]
     Active Substance: LOPERAMIDE
  4. REMICADE [Concomitant]
     Active Substance: INFLIXIMAB
  5. BUPROPION SR 150MG [Suspect]
     Active Substance: BUPROPION
     Indication: DEPRESSION
     Route: 048
     Dates: start: 20200519, end: 20200618

REACTIONS (7)
  - Product substitution issue [None]
  - Arthralgia [None]
  - Hypomania [None]
  - Tachycardia [None]
  - Anger [None]
  - Feeling abnormal [None]
  - Headache [None]

NARRATIVE: CASE EVENT DATE: 20200601
